FAERS Safety Report 23090882 (Version 1)
Quarter: 2023Q4

REPORT INFORMATION
  Report Type: Spontaneous
  Country: JP (occurrence: JP)
  Receive Date: 20231020
  Receipt Date: 20231020
  Transmission Date: 20240109
  Serious: Yes (Other)
  Sender: FDA-Public Use
  Company Number: JP-SUN PHARMACEUTICAL INDUSTRIES LTD-2023R1-414113

PATIENT
  Age: 65 Year
  Sex: Male

DRUGS (1)
  1. LITHIUM [Suspect]
     Active Substance: LITHIUM
     Indication: Bipolar I disorder
     Dosage: 800 MILLIGRAM, BID
     Route: 065

REACTIONS (4)
  - COVID-19 [Unknown]
  - Respiratory distress [Unknown]
  - Acute kidney injury [Unknown]
  - Delirium [Unknown]
